FAERS Safety Report 23776817 (Version 2)
Quarter: 2025Q3

REPORT INFORMATION
  Report Type: Report from Study
  Country: CA (occurrence: CA)
  Receive Date: 20240424
  Receipt Date: 20250930
  Transmission Date: 20251021
  Serious: Yes (Hospitalization, Other)
  Sender: AUROBINDO
  Company Number: CA-AUROBINDO-AUR-APL-2024-018556

PATIENT
  Age: 3 Year
  Sex: Female

DRUGS (6)
  1. METHOTREXATE [Suspect]
     Active Substance: METHOTREXATE
     Indication: Still^s disease
     Route: 065
  2. TOFACITINIB [Suspect]
     Active Substance: TOFACITINIB
     Indication: Still^s disease
     Route: 065
  3. TOCILIZUMAB [Suspect]
     Active Substance: TOCILIZUMAB
     Indication: Still^s disease
     Route: 065
  4. ANAKINRA [Suspect]
     Active Substance: ANAKINRA
     Indication: Still^s disease
     Route: 065
  5. CANAKINUMAB [Suspect]
     Active Substance: CANAKINUMAB
     Indication: Still^s disease
     Route: 065
  6. CYCLOSPORINE [Suspect]
     Active Substance: CYCLOSPORINE
     Indication: Still^s disease
     Route: 065

REACTIONS (13)
  - Spinal fracture [Recovered/Resolved]
  - Hypertensive cardiomyopathy [Recovered/Resolved]
  - Obstructive sleep apnoea syndrome [Recovered/Resolved]
  - Epidural lipomatosis [Recovered/Resolved]
  - Spinal stenosis [Recovered/Resolved]
  - Short stature [Recovered/Resolved]
  - Hepatic steatosis [Recovered/Resolved]
  - Cushingoid [Recovered/Resolved]
  - Growth retardation [Recovered/Resolved]
  - Spinal disorder [Recovered/Resolved]
  - Osteoporosis [Recovered/Resolved]
  - Drug ineffective [Recovered/Resolved]
  - Failure to thrive [Recovering/Resolving]
